FAERS Safety Report 6870644-6 (Version None)
Quarter: 2010Q3

REPORT INFORMATION
  Report Type: 
  Country: None (occurrence: None)
  Receive Date: 20100723
  Receipt Date: 20100712
  Transmission Date: 20110219
  Serious: Yes (Other)
  Sender: FDA-Public Use
  Company Number: CA-JNJFOC-20100704493

PATIENT
  Sex: Female
  Weight: 67 kg

DRUGS (3)
  1. REMICADE [Suspect]
     Indication: CROHN'S DISEASE
     Route: 042
  2. REMICADE [Suspect]
     Route: 042
  3. SOLU-CORTEF [Concomitant]
     Indication: PREMEDICATION

REACTIONS (4)
  - FATIGUE [None]
  - HAEMORRHAGE [None]
  - NAUSEA [None]
  - PAIN [None]
